FAERS Safety Report 5022291-9 (Version None)
Quarter: 2006Q2

REPORT INFORMATION
  Report Type: 
  Country: None (occurrence: None)
  Receive Date: 20060609
  Receipt Date: 20060519
  Transmission Date: 20061013
  Serious: Yes (Other)
  Sender: FDA-Public Use
  Company Number: NL-GLAXOSMITHKLINE-B0425311A

PATIENT
  Age: 53 Year
  Sex: Male

DRUGS (2)
  1. SALBUTAMOL SULPHATE [Suspect]
     Route: 055
  2. FLIXOTIDE [Concomitant]
     Dates: start: 20060508

REACTIONS (2)
  - DRUG DEPENDENCE [None]
  - DYSPNOEA [None]
